FAERS Safety Report 7358455-9 (Version None)
Quarter: 2011Q1

REPORT INFORMATION
  Report Type: 
  Country: None (occurrence: None)
  Receive Date: 20110317
  Receipt Date: 20101110
  Transmission Date: 20110831
  Serious: Yes (Hospitalization)
  Sender: FDA-Public Use
  Company Number: JP-ASTRAZENECA-2011SE14276

PATIENT
  Age: 67 Year
  Sex: Male

DRUGS (15)
  1. GENINAX [Suspect]
     Route: 048
     Dates: start: 20100727, end: 20100927
  2. CRAVIT [Concomitant]
     Indication: PNEUMONIA
     Route: 048
     Dates: start: 20100927, end: 20101003
  3. MUCOSTA [Concomitant]
     Indication: GASTRITIS
     Route: 048
     Dates: start: 20100811, end: 20100902
  4. GENINAX [Suspect]
     Indication: PNEUMONIA
     Route: 048
     Dates: start: 20100901, end: 20100911
  5. CARBOPLATIN [Concomitant]
     Indication: LUNG NEOPLASM MALIGNANT
     Route: 065
     Dates: start: 20100830, end: 20100830
  6. TAXOTERE [Suspect]
     Indication: LUNG NEOPLASM MALIGNANT
     Route: 065
     Dates: start: 20100920, end: 20100920
  7. BIO-THREE [Concomitant]
     Indication: CONSTIPATION
     Route: 048
     Dates: start: 20100903, end: 20100929
  8. LANSOPRAZOLE-OD [Concomitant]
     Indication: GASTRIC ULCER
     Route: 048
     Dates: start: 20100911, end: 20101022
  9. LOXONIN [Concomitant]
     Indication: BACK PAIN
     Route: 048
     Dates: start: 20100811, end: 20100902
  10. GRAN [Suspect]
     Indication: NEUTROPHIL COUNT DECREASED
     Route: 058
     Dates: start: 20100927, end: 20101001
  11. MYSLEE [Concomitant]
     Indication: INSOMNIA
     Route: 048
     Dates: start: 20101004
  12. MEROPEN [Suspect]
     Indication: FEBRILE NEUTROPENIA
     Route: 042
     Dates: start: 20100928, end: 20101001
  13. NAIXAN [Suspect]
     Indication: BACK PAIN
     Route: 048
     Dates: start: 20100911, end: 20101001
  14. GLYBURIDE [Concomitant]
     Indication: DIABETES MELLITUS
     Route: 048
     Dates: start: 20100824
  15. GEMZAR [Concomitant]
     Indication: LUNG NEOPLASM MALIGNANT
     Route: 065
     Dates: start: 20100830, end: 20100830

REACTIONS (2)
  - BLOOD CREATINE PHOSPHOKINASE INCREASED [None]
  - RENAL FAILURE ACUTE [None]
